FAERS Safety Report 12287789 (Version 3)
Quarter: 2016Q2

REPORT INFORMATION
  Report Type: Report from Study
  Country: CO (occurrence: CO)
  Receive Date: 20160420
  Receipt Date: 20160524
  Transmission Date: 20160815
  Serious: Yes (Death, Hospitalization, Other)
  Sender: FDA-Public Use
  Company Number: PHHY2016CO052432

PATIENT
  Sex: Female
  Weight: 44 kg

DRUGS (2)
  1. AFINITOR [Suspect]
     Active Substance: EVEROLIMUS
     Indication: NEUROENDOCRINE TUMOUR
     Dosage: 10 MG, Q12H
     Route: 048
     Dates: start: 20160229
  2. AFINITOR [Suspect]
     Active Substance: EVEROLIMUS
     Dosage: 10 MG, QD
     Route: 048

REACTIONS (9)
  - Inflammation [Unknown]
  - Gastritis [Unknown]
  - Swelling [Unknown]
  - Gastric disorder [Unknown]
  - Metastases to spleen [Unknown]
  - Metastatic neoplasm [Unknown]
  - Dizziness [Unknown]
  - Malignant neoplasm progression [Fatal]
  - Complication associated with device [Unknown]
